FAERS Safety Report 13924420 (Version 5)
Quarter: 2018Q2

REPORT INFORMATION
  Report Type: Report from Study
  Country: CA (occurrence: CA)
  Receive Date: 20170831
  Receipt Date: 20180629
  Transmission Date: 20180711
  Serious: Yes (Other)
  Sender: FDA-Public Use
  Company Number: CA-ROCHE-1984882

PATIENT
  Age: 74 Year
  Sex: Female

DRUGS (9)
  1. ACTEMRA [Suspect]
     Active Substance: TOCILIZUMAB
     Dosage: INFUSION #18
     Route: 042
     Dates: start: 20170821
  2. METHOTREXATE. [Concomitant]
     Active Substance: METHOTREXATE
  3. COLCHICINE. [Concomitant]
     Active Substance: COLCHICINE
  4. ACTEMRA [Suspect]
     Active Substance: TOCILIZUMAB
     Route: 042
     Dates: start: 20160722
  5. ACTEMRA [Suspect]
     Active Substance: TOCILIZUMAB
     Route: 042
     Dates: start: 20180305
  6. DEXILANT [Concomitant]
     Active Substance: DEXLANSOPRAZOLE
  7. FOLIC ACID. [Concomitant]
     Active Substance: FOLIC ACID
  8. BUTRANS [Concomitant]
     Active Substance: BUPRENORPHINE
  9. ACTEMRA [Suspect]
     Active Substance: TOCILIZUMAB
     Indication: RHEUMATOID ARTHRITIS
     Route: 042
     Dates: start: 20160316

REACTIONS (7)
  - Disability assessment scale score decreased [Recovering/Resolving]
  - Hypotension [Unknown]
  - Arthralgia [Unknown]
  - Angiopathy [Unknown]
  - Muscle spasms [Unknown]
  - Foot fracture [Unknown]
  - Spinal column stenosis [Unknown]

NARRATIVE: CASE EVENT DATE: 20170807
